FAERS Safety Report 25933143 (Version 1)
Quarter: 2025Q4

REPORT INFORMATION
  Report Type: Spontaneous
  Country: US (occurrence: US)
  Receive Date: 20251017
  Receipt Date: 20251017
  Transmission Date: 20260118
  Serious: No
  Sender: MERCK SHARP & DOHME LLC
  Company Number: US-009507513-2330798

PATIENT
  Age: 58 Year
  Sex: Female

DRUGS (3)
  1. KEYTRUDA [Suspect]
     Active Substance: PEMBROLIZUMAB
     Indication: Triple negative breast cancer
     Dosage: ^200 MG^
     Route: 042
  2. CARBOPLATIN [Concomitant]
     Active Substance: CARBOPLATIN
     Indication: Triple negative breast cancer
  3. TAXOL [Concomitant]
     Active Substance: PACLITAXEL
     Indication: Triple negative breast cancer

REACTIONS (1)
  - Rash [Recovered/Resolved]

NARRATIVE: CASE EVENT DATE: 20250812
